FAERS Safety Report 23786975 (Version 1)
Quarter: 2024Q2

REPORT INFORMATION
  Report Type: Report from Study
  Country: JP (occurrence: JP)
  Receive Date: 20240426
  Receipt Date: 20240426
  Transmission Date: 20240716
  Serious: Yes (Death, Hospitalization)
  Sender: FDA-Public Use
  Company Number: JP-MTPC-MTPC2023-0024952

PATIENT
  Age: 54 Year
  Sex: Male

DRUGS (19)
  1. VADADUSTAT [Suspect]
     Active Substance: VADADUSTAT
     Indication: Nephrogenic anaemia
     Dosage: 300 MILLIGRAM, QD
     Route: 048
     Dates: start: 20211214, end: 20220419
  2. VADADUSTAT [Suspect]
     Active Substance: VADADUSTAT
     Dosage: 450 MILLIGRAM, QD
     Route: 048
     Dates: start: 20220420, end: 20220628
  3. VADADUSTAT [Suspect]
     Active Substance: VADADUSTAT
     Dosage: 150 MILLIGRAM, QD
     Route: 048
     Dates: start: 20220629, end: 20221012
  4. DARBEPOETIN ALFA [Concomitant]
     Active Substance: DARBEPOETIN ALFA
     Indication: Nephrogenic anaemia
     Dosage: 30 MICROGRAM, 1/WEEK
     Route: 042
     Dates: end: 20211012
  5. CALCIUM CARBONATE [Concomitant]
     Active Substance: CALCIUM CARBONATE
     Indication: Product used for unknown indication
     Dosage: 6000 MILLIGRAM, QD
     Route: 048
     Dates: end: 20220503
  6. CALCIUM CARBONATE [Concomitant]
     Active Substance: CALCIUM CARBONATE
     Dosage: 3000 MILLIGRAM, QD
     Route: 048
     Dates: start: 20220504
  7. FOSRENOL [Concomitant]
     Active Substance: LANTHANUM CARBONATE
     Indication: Product used for unknown indication
     Dosage: 2250 MILLIGRAM, QD
     Route: 048
  8. RENAGEL [Concomitant]
     Active Substance: SEVELAMER HYDROCHLORIDE
     Indication: Product used for unknown indication
     Dosage: 2700 MILLIGRAM, QD
     Route: 048
     Dates: end: 20220503
  9. CLOPIDOGREL BISULFATE [Concomitant]
     Active Substance: CLOPIDOGREL BISULFATE
     Indication: Illness
     Dosage: 75 MILLIGRAM, QD
     Route: 048
  10. NICORANDIL [Concomitant]
     Active Substance: NICORANDIL
     Indication: Illness
     Dosage: 15 MILLIGRAM, QD
     Route: 048
  11. METHYLCOBALAMIN [Concomitant]
     Active Substance: METHYLCOBALAMIN
     Indication: Illness
     Dosage: 3000 MICROGRAM, QD
     Route: 048
  12. NALFURAFINE HYDROCHLORIDE [Concomitant]
     Active Substance: NALFURAFINE HYDROCHLORIDE
     Indication: Illness
     Dosage: 2.5 MICROGRAM, QD
     Route: 048
  13. POLARAMINE [Concomitant]
     Active Substance: DEXCHLORPHENIRAMINE MALEATE
     Indication: Illness
     Dosage: 2 MILLIGRAM, QD
     Route: 048
  14. BISOPROLOL FUMARATE [Concomitant]
     Active Substance: BISOPROLOL FUMARATE
     Indication: Illness
     Dosage: 1.25 MILLIGRAM, QD
     Route: 048
  15. ICOSAPENT ETHYL [Concomitant]
     Active Substance: ICOSAPENT ETHYL
     Indication: Illness
     Dosage: 1800 MILLIGRAM, QD
     Route: 048
  16. LEVOTHYROXINE [Concomitant]
     Active Substance: LEVOTHYROXINE\LEVOTHYROXINE SODIUM
     Indication: Illness
     Dosage: 50 MICROGRAM, QD
     Route: 048
  17. DIETARY SUPPLEMENT\PROBIOTICS [Concomitant]
     Active Substance: DIETARY SUPPLEMENT\PROBIOTICS NOS
     Indication: Illness
     Dosage: 36 MILLIGRAM, QD
     Route: 048
  18. NEXIUM [Concomitant]
     Active Substance: ESOMEPRAZOLE MAGNESIUM
     Indication: Illness
     Dosage: 20 MILLIGRAM, QD
     Route: 048
  19. ASPIRIN [Concomitant]
     Active Substance: ASPIRIN
     Indication: Illness
     Dosage: 100 MILLIGRAM, QD
     Route: 048

REACTIONS (3)
  - Lower gastrointestinal perforation [Fatal]
  - Cellulitis [Recovering/Resolving]
  - Haemoglobin increased [Recovering/Resolving]

NARRATIVE: CASE EVENT DATE: 20220614
